FAERS Safety Report 20075301 (Version 2)
Quarter: 2021Q4

REPORT INFORMATION
  Report Type: Spontaneous
  Country: CA (occurrence: CA)
  Receive Date: 20211116
  Receipt Date: 20211116
  Transmission Date: 20220303
  Serious: Yes (Other)
  Sender: FDA-Public Use
  Company Number: CA-PFIZER INC-202101511719

PATIENT
  Sex: Male

DRUGS (4)
  1. SOMAVERT [Suspect]
     Active Substance: PEGVISOMANT
     Indication: Acromegaly
     Dosage: 10 MG, 1X/DAY
     Route: 058
  2. DOSTINEX [Suspect]
     Active Substance: CABERGOLINE
     Dosage: 1 DF
     Route: 065
  3. SANDOSTATIN [Suspect]
     Active Substance: OCTREOTIDE ACETATE
     Dosage: 30 MG, MONTHLY
     Route: 065
  4. VALSARTAN [Concomitant]
     Active Substance: VALSARTAN
     Dosage: 160 MG
     Route: 065

REACTIONS (2)
  - Insulin-like growth factor increased [Not Recovered/Not Resolved]
  - Neoplasm [Not Recovered/Not Resolved]
